FAERS Safety Report 20379981 (Version 1)
Quarter: 2022Q1

REPORT INFORMATION
  Report Type: Spontaneous
  Country: FR (occurrence: FR)
  Receive Date: 20220126
  Receipt Date: 20220126
  Transmission Date: 20220423
  Serious: Yes (Death)
  Sender: FDA-Public Use
  Company Number: None

PATIENT
  Age: 67 Year
  Sex: Male

DRUGS (3)
  1. NEXAVAR [Suspect]
     Active Substance: SORAFENIB
     Indication: Hepatocellular carcinoma
     Dosage: 1 DF, QD
     Route: 048
     Dates: start: 202110, end: 202110
  2. CABOMETYX [Suspect]
     Active Substance: CABOZANTINIB S-MALATE
     Indication: Hepatocellular carcinoma
     Dosage: 1 DF, QD
     Route: 048
     Dates: start: 202111, end: 202111
  3. COMIRNATY [Suspect]
     Active Substance: TOZINAMERAN
     Indication: COVID-19 immunisation
     Dosage: 1 DF, ONCE
     Route: 030
     Dates: start: 20211218, end: 20211218

REACTIONS (2)
  - Mesenteric vein thrombosis [Fatal]
  - Portal vein thrombosis [Fatal]

NARRATIVE: CASE EVENT DATE: 20211227
